FAERS Safety Report 9856647 (Version 1)
Quarter: 2014Q1

REPORT INFORMATION
  Report Type: Spontaneous
  Country: MX (occurrence: MX)
  Receive Date: 20140130
  Receipt Date: 20140130
  Transmission Date: 20141002
  Serious: Yes (Other)
  Sender: FDA-Public Use
  Company Number: PHHY2014MX010838

PATIENT
  Age: 81 Year
  Sex: Female

DRUGS (5)
  1. EXELON PATCH [Suspect]
     Indication: AMNESIA
     Dosage: 13.3 MG, DAILY (PATCH 15 CM2)
     Route: 062
     Dates: start: 201401, end: 201401
  2. EXELON PATCH [Suspect]
     Dosage: 9.5 MG, DAILY (PATCH 10 CM2)
     Route: 062
     Dates: start: 201401
  3. MEMANTINE [Concomitant]
     Indication: AMNESIA
     Dosage: UNK UKN, UNK
  4. QUETIAPINE [Concomitant]
     Indication: ANXIOLYTIC THERAPY
     Dosage: UNK UKN, UNK
  5. LORAZEPAM [Concomitant]
     Indication: SEDATIVE THERAPY
     Dosage: UNK UKN, UNK

REACTIONS (2)
  - Epilepsy [Not Recovered/Not Resolved]
  - Nervousness [Not Recovered/Not Resolved]
